FAERS Safety Report 12676363 (Version 2)
Quarter: 2017Q2

REPORT INFORMATION
  Report Type: Report from Study
  Country: IL (occurrence: IL)
  Receive Date: 20160823
  Receipt Date: 20170517
  Transmission Date: 20170830
  Serious: Yes (Hospitalization)
  Sender: FDA-Public Use
  Company Number: PHHY2016IL074494

PATIENT
  Sex: Male
  Weight: 3.23 kg

DRUGS (1)
  1. GILENYA [Suspect]
     Active Substance: FINGOLIMOD HYDROCHLORIDE
     Indication: FOETAL EXPOSURE DURING PREGNANCY
     Dosage: 0.5 MG, QD (MATERNAL DOSE)
     Route: 064

REACTIONS (6)
  - Haematochezia [Recovered/Resolved]
  - Foetal exposure during pregnancy [Unknown]
  - Gastrointestinal infection [Recovered/Resolved]
  - Malaise [Unknown]
  - Milk allergy [Recovered/Resolved]
  - Pyrexia [Recovered/Resolved]
